FAERS Safety Report 8022648-8 (Version None)
Quarter: 2012Q1

REPORT INFORMATION
  Report Type: 
  Country: None (occurrence: None)
  Receive Date: 20120104
  Receipt Date: 20111229
  Transmission Date: 20120608
  Serious: Yes (Other)
  Sender: FDA-Public Use
  Company Number: ES-GLAXOSMITHKLINE-B0772795A

PATIENT
  Age: 57 Year
  Sex: Male
  Weight: 83 kg

DRUGS (4)
  1. BISOPROLOL [Concomitant]
  2. DUTASTERIDE [Concomitant]
  3. ROSUVASTATIN [Concomitant]
  4. DUTASTERIDE/TAMSULOSIN HYDROCHLORIDE [Suspect]
     Indication: BENIGN PROSTATIC HYPERPLASIA
     Route: 048
     Dates: start: 20110202, end: 20110420

REACTIONS (2)
  - RHINITIS [None]
  - RESPIRATORY DISTRESS [None]
